FAERS Safety Report 10911883 (Version 1)
Quarter: 2015Q1

REPORT INFORMATION
  Report Type: Spontaneous
  Country: US (occurrence: US)
  Receive Date: 20150313
  Receipt Date: 20150313
  Transmission Date: 20150721
  Serious: No
  Sender: FDA-Public Use
  Company Number: US-AMGEN-USASP2015022737

PATIENT
  Age: 57 Year

DRUGS (1)
  1. ENBREL [Suspect]
     Active Substance: ETANERCEPT
     Indication: PRODUCT USED FOR UNKNOWN INDICATION
     Dosage: UNK
     Route: 065

REACTIONS (12)
  - Sacroiliitis [Unknown]
  - Musculoskeletal pain [Unknown]
  - Muscular weakness [Unknown]
  - Arthralgia [Unknown]
  - Pain in extremity [Unknown]
  - Neck pain [Unknown]
  - Fatigue [Unknown]
  - Gastrooesophageal reflux disease [Unknown]
  - Pain [Unknown]
  - Drug ineffective [Unknown]
  - Musculoskeletal stiffness [Unknown]
  - Migraine [Unknown]

NARRATIVE: CASE EVENT DATE: 201308
